FAERS Safety Report 11668783 (Version 8)
Quarter: 2016Q2

REPORT INFORMATION
  Report Type: Spontaneous
  Country: US (occurrence: US)
  Receive Date: 20151027
  Receipt Date: 20160616
  Transmission Date: 20160815
  Serious: No
  Sender: FDA-Public Use
  Company Number: US-ACTELION PHARMACEUTICALS US, INC.-A-NJ2015-126181

PATIENT
  Age: 83 Year
  Sex: Male

DRUGS (4)
  1. OPSUMIT [Suspect]
     Active Substance: MACITENTAN
     Indication: PULMONARY ARTERIAL HYPERTENSION
     Dosage: 10 MG, QD
     Route: 048
     Dates: start: 20140415
  2. TYVASO [Concomitant]
     Active Substance: TREPROSTINIL
  3. REMODULIN [Suspect]
     Active Substance: TREPROSTINIL
     Indication: PRODUCT USED FOR UNKNOWN INDICATION
     Dosage: UNK
     Route: 058
     Dates: start: 20151008
  4. ADCIRCA [Concomitant]
     Active Substance: TADALAFIL

REACTIONS (23)
  - Syncope [Unknown]
  - Eructation [Unknown]
  - Weight decreased [Unknown]
  - Fall [Unknown]
  - Epistaxis [Unknown]
  - Fluid retention [Unknown]
  - Nasal congestion [Unknown]
  - Nausea [Unknown]
  - Dizziness [Unknown]
  - Abnormal faeces [Unknown]
  - Contusion [Unknown]
  - Pain in extremity [Unknown]
  - Oedema peripheral [Unknown]
  - Dyspnoea [Unknown]
  - Blood pressure decreased [Unknown]
  - Flatulence [Unknown]
  - Abdominal distension [Unknown]
  - Abdominal discomfort [Unknown]
  - Change of bowel habit [Unknown]
  - Diarrhoea [Unknown]
  - Gout [Unknown]
  - Arthritis [Unknown]
  - Arthralgia [Unknown]

NARRATIVE: CASE EVENT DATE: 201510
